FAERS Safety Report 5877018-5 (Version None)
Quarter: 2008Q3

REPORT INFORMATION
  Report Type: 
  Country: None (occurrence: None)
  Receive Date: 20080910
  Receipt Date: 20080902
  Transmission Date: 20090109
  Serious: Yes (Other)
  Sender: FDA-Public Use
  Company Number: PHEH2008US07852

PATIENT
  Age: 68 Year
  Sex: Female

DRUGS (4)
  1. RECLAST [Suspect]
     Dosage: UNK, UNK
     Dates: start: 20080827, end: 20080827
  2. NORVASC [Concomitant]
     Dosage: UNK, UNK
  3. TOPROL-XL [Concomitant]
     Dosage: UNK, UNK
  4. LIPITOR [Concomitant]
     Dosage: UNK, UNK

REACTIONS (1)
  - DEAFNESS [None]
